FAERS Safety Report 21782400 (Version 1)
Quarter: 2022Q4

REPORT INFORMATION
  Report Type: Spontaneous
  Country: US (occurrence: US)
  Receive Date: 20221227
  Receipt Date: 20221227
  Transmission Date: 20230113
  Serious: Yes (Other)
  Sender: FDA-Public Use
  Company Number: US-SA-SAC20221226000113

PATIENT
  Age: 29 Year
  Sex: Male

DRUGS (4)
  1. ELOCTATE [Suspect]
     Active Substance: EFMOROCTOCOG ALFA
     Indication: Factor VIII deficiency
     Dosage: 5000 UNITS (4500-5500) Q4D FOR SEVERE BLEED, AS NEEDED
     Route: 042
     Dates: start: 202206
  2. ELOCTATE [Suspect]
     Active Substance: EFMOROCTOCOG ALFA
     Indication: Factor VIII deficiency
     Dosage: 5000 UNITS (4500-5500) Q4D FOR SEVERE BLEED, AS NEEDED
     Route: 042
     Dates: start: 202206
  3. ELOCTATE [Suspect]
     Active Substance: EFMOROCTOCOG ALFA
     Dosage: 3000 UNITS (2700-3300)  FOR MILD TO MODERATE BLEED, AS NEEDED
     Route: 042
     Dates: start: 202206
  4. ELOCTATE [Suspect]
     Active Substance: EFMOROCTOCOG ALFA
     Dosage: 3000 UNITS (2700-3300)  FOR MILD TO MODERATE BLEED, AS NEEDED
     Route: 042
     Dates: start: 202206

REACTIONS (1)
  - Haemorrhage [Unknown]

NARRATIVE: CASE EVENT DATE: 20220101
